FAERS Safety Report 8383793-0 (Version None)
Quarter: 2012Q1

REPORT INFORMATION
  Report Type: 
  Country: None (occurrence: None)
  Receive Date: 20120323
  Receipt Date: 20110325
  Transmission Date: 20120608
  Serious: Yes (Other)
  Sender: FDA-Public Use
  Company Number: 163-21880-11030759

PATIENT
  Age: 75 Year
  Sex: Female
  Weight: 63.5036 kg

DRUGS (12)
  1. HYDROCHLOROTHIAZIDE [Concomitant]
  2. LIPITOR [Concomitant]
  3. NORVASC [Concomitant]
  4. FOSINOPRIL SODIUM [Concomitant]
  5. REVLIMID [Suspect]
     Indication: MULTIPLE MYELOMA
     Dosage: 10 MG, DAILY X 21 DAYS, PO
     Route: 048
     Dates: start: 20100329
  6. PROMETHAZINE [Concomitant]
  7. MV (MV) [Concomitant]
  8. DEXAMETHASONE [Concomitant]
  9. ASPIRIN [Concomitant]
  10. NAPROXEN (ALEVE) [Concomitant]
  11. GLIPIZIDE ER (GLIPIZIDE) [Concomitant]
  12. FAMOTIDINE [Concomitant]

REACTIONS (1)
  - BLOOD GLUCOSE INCREASED [None]
